FAERS Safety Report 14080732 (Version 1)
Quarter: 2017Q4

REPORT INFORMATION
  Report Type: Spontaneous
  Country: US (occurrence: US)
  Receive Date: 20171012
  Receipt Date: 20171012
  Transmission Date: 20180321
  Serious: No
  Sender: FDA-Public Use
  Company Number: US-009507513-1709USA013521

PATIENT
  Age: 40 Year
  Sex: Female

DRUGS (2)
  1. ASMANEX [Suspect]
     Active Substance: MOMETASONE FUROATE
     Indication: ASTHMA
     Dosage: ONE INHALATION, TWICE A DAY
     Route: 055
     Dates: start: 20170907
  2. VENTOLIN [Concomitant]
     Active Substance: ALBUTEROL SULFATE

REACTIONS (3)
  - Dyspnoea [Not Recovered/Not Resolved]
  - Chest discomfort [Not Recovered/Not Resolved]
  - Drug dose omission [Unknown]

NARRATIVE: CASE EVENT DATE: 20170926
